FAERS Safety Report 8823117 (Version 1)
Quarter: 2012Q4

REPORT INFORMATION
  Report Type: 
  Country: US (occurrence: US)
  Receive Date: 20121003
  Receipt Date: 20121003
  Transmission Date: 20130627
  Serious: Yes (Other)
  Sender: FDA-Public Use
  Company Number: US-ROCHE-1134853

PATIENT
  Sex: Male

DRUGS (5)
  1. RITUXAN [Suspect]
     Indication: B-CELL LYMPHOMA
     Route: 065
     Dates: start: 19980227
  2. QUESTRAN [Concomitant]
  3. G-CSF [Concomitant]
  4. AMPHOTERICIN [Concomitant]
     Route: 042
  5. LASIX [Concomitant]

REACTIONS (7)
  - Tumour necrosis [Unknown]
  - Abdominal pain [Unknown]
  - Pyrexia [Unknown]
  - Myalgia [Unknown]
  - Malabsorption [Unknown]
  - White blood cell count decreased [Unknown]
  - Chills [Unknown]
